FAERS Safety Report 5935783-2 (Version None)
Quarter: 2008Q4

REPORT INFORMATION
  Report Type: 
  Country: None (occurrence: None)
  Receive Date: 20081029
  Receipt Date: 20081029
  Transmission Date: 20090506
  Serious: Yes (Other)
  Sender: FDA-Public Use
  Company Number: None

PATIENT
  Age: 59 Year
  Sex: Female
  Weight: 61.2356 kg

DRUGS (2)
  1. LEVAQUIN [Suspect]
     Indication: GASTROENTERITIS VIRAL
     Dosage: 1 X A DAY
     Dates: start: 20081001, end: 20081003
  2. LEVAQUIN [Suspect]
     Indication: GASTROENTERITIS VIRAL
     Dosage: 1 X A DAY
     Dates: start: 20081009, end: 20081011

REACTIONS (6)
  - GASTRITIS EROSIVE [None]
  - GLOSSODYNIA [None]
  - INSOMNIA [None]
  - MANIA [None]
  - ORAL DISCOMFORT [None]
  - RESTLESSNESS [None]
